FAERS Safety Report 4650994-4 (Version None)
Quarter: 2005Q2

REPORT INFORMATION
  Report Type: 
  Country: None (occurrence: None)
  Receive Date: 20050429
  Receipt Date: 20050419
  Transmission Date: 20051028
  Serious: Yes (Other)
  Sender: FDA-Public Use
  Company Number: 141899USA

PATIENT
  Age: 39 Year
  Sex: Male

DRUGS (1)
  1. COPAXONE [Suspect]
     Indication: MULTIPLE SCLEROSIS
     Dates: start: 20020617

REACTIONS (9)
  - CARDIAC FLUTTER [None]
  - INJECTION SITE DISCOLOURATION [None]
  - INJECTION SITE HAEMORRHAGE [None]
  - INJECTION SITE IRRITATION [None]
  - INJECTION SITE SWELLING [None]
  - INJECTION SITE WARMTH [None]
  - SCAB [None]
  - SKIN HYPERTROPHY [None]
  - SKIN NECROSIS [None]
